FAERS Safety Report 8591360-9 (Version None)
Quarter: 2012Q3

REPORT INFORMATION
  Report Type: 
  Country: None (occurrence: None)
  Receive Date: 20120814
  Receipt Date: 20120803
  Transmission Date: 20120928
  Serious: Yes (Disabling)
  Sender: FDA-Public Use
  Company Number: NL-ACCORD-014307

PATIENT
  Age: 52 Year
  Sex: Female
  Weight: 71 kg

DRUGS (2)
  1. ANASTROZOLE [Suspect]
     Route: 048
     Dates: start: 20120201
  2. ACETAMINOPHEN [Concomitant]
     Dosage: IF NEEDED
     Route: 048

REACTIONS (3)
  - FATIGUE [None]
  - PAIN [None]
  - ARTHRALGIA [None]
